FAERS Safety Report 8072728-6 (Version None)
Quarter: 2012Q1

REPORT INFORMATION
  Report Type: 
  Country: None (occurrence: None)
  Receive Date: 20120126
  Receipt Date: 20120117
  Transmission Date: 20120608
  Serious: Yes (Other)
  Sender: FDA-Public Use
  Company Number: CHPA2012US001569

PATIENT
  Age: 49 Year
  Sex: Male

DRUGS (1)
  1. EXCEDRIN (MIGRAINE) [Suspect]
     Indication: MIGRAINE
     Dosage: 2 TO 4 DF, PER DAY
     Route: 048
     Dates: start: 20060101, end: 20120116

REACTIONS (5)
  - MALAISE [None]
  - DIARRHOEA [None]
  - OVERDOSE [None]
  - MUSCLE SPASMS [None]
  - PYREXIA [None]
